FAERS Safety Report 6614184-8 (Version None)
Quarter: 2010Q1

REPORT INFORMATION
  Report Type: 
  Country: None (occurrence: None)
  Receive Date: 20100304
  Receipt Date: 20100226
  Transmission Date: 20100710
  Serious: Yes (Death)
  Sender: FDA-Public Use
  Company Number: UA-ELI_LILLY_AND_COMPANY-UA201002005648

PATIENT
  Sex: Female
  Weight: 91 kg

DRUGS (11)
  1. GEMCITABINE HCL [Suspect]
     Indication: BREAST CANCER METASTATIC
     Dosage: 1000 MG/M2, (1970 MG) D1 AND D8 EVERY 3 WEEKS
     Route: 042
     Dates: start: 20100128
  2. VINFLUNINE [Suspect]
     Indication: BREAST CANCER METASTATIC
     Dosage: 320 MG/M2, (630 MG) DAY1 OF EVERY 3 WEEKS
     Route: 042
     Dates: start: 20100128
  3. DEXAMETHASONE /00016002/ [Concomitant]
     Dates: start: 20100128, end: 20100129
  4. ONDANSETRON [Concomitant]
     Dates: start: 20100128, end: 20100202
  5. SODIUM CHLORIDE [Concomitant]
     Dates: start: 20100128, end: 20100128
  6. SENNOSIDE [Concomitant]
     Dates: start: 20100129, end: 20100205
  7. EUPHYLLINE [Concomitant]
     Dates: start: 20100201, end: 20100202
  8. DIPYRONE INJ [Concomitant]
     Dates: start: 20100203, end: 20100204
  9. DIMEDROL [Concomitant]
     Dates: start: 20100203, end: 20100203
  10. PROSERIN [Concomitant]
     Dates: start: 20100204, end: 20100204
  11. NORMACOL [Concomitant]
     Dates: start: 20100204, end: 20100204

REACTIONS (1)
  - MALIGNANT NEOPLASM PROGRESSION [None]
